FAERS Safety Report 18746759 (Version 5)
Quarter: 2021Q3

REPORT INFORMATION
  Report Type: Spontaneous
  Country: GB (occurrence: GB)
  Receive Date: 20210115
  Receipt Date: 20210820
  Transmission Date: 20211014
  Serious: Yes (Death, Other)
  Sender: FDA-Public Use
  Company Number: PHHY2018GB187437

PATIENT
  Age: 58 Year
  Sex: Female

DRUGS (57)
  1. DOCETAXEL. [Suspect]
     Active Substance: DOCETAXEL
     Indication: BREAST CANCER METASTATIC
     Dosage: 108 MG, Q3W(DOSE MODIFIED)
     Route: 042
     Dates: start: 20150602, end: 20150602
  2. DOCETAXEL. [Suspect]
     Active Substance: DOCETAXEL
     Indication: BREAST CANCER
     Dosage: 80 MG
     Route: 042
     Dates: start: 20150629, end: 20150720
  3. VINORELBINE [Suspect]
     Active Substance: VINORELBINE TARTRATE
     Indication: HER2 POSITIVE BREAST CANCER
     Dosage: 60 MG
     Route: 048
     Dates: start: 20180530, end: 20180608
  4. CAPECITABINE. [Suspect]
     Active Substance: CAPECITABINE
     Dosage: 6000 MG, QD (3000MG , BID)
     Route: 048
     Dates: start: 20170210, end: 20170728
  5. CAPECITABINE. [Suspect]
     Active Substance: CAPECITABINE
     Dosage: 1500 MG, QD
     Route: 048
     Dates: start: 20170210, end: 20170728
  6. PERTUZUMAB. [Suspect]
     Active Substance: PERTUZUMAB
     Dosage: 1 DF, Q3W
     Route: 042
  7. TRASTUZUMAB. [Suspect]
     Active Substance: TRASTUZUMAB
     Dosage: 140 MG, Q3W
     Route: 042
     Dates: start: 20160215, end: 20160215
  8. ERIBULIN MESILATE [Suspect]
     Active Substance: ERIBULIN
     Indication: HER2 POSITIVE BREAST CANCER
     Dosage: 1.5 MG, Q3W
     Route: 042
     Dates: start: 20160411, end: 20160624
  9. DOMPERIDONE [Concomitant]
     Active Substance: DOMPERIDONE
     Dosage: 30 MG, QD
     Route: 048
     Dates: start: 20160406, end: 20160421
  10. TRASTUZUMAB EMTANSINE [Suspect]
     Active Substance: ADO-TRASTUZUMAB EMTANSINE
     Indication: HER2 POSITIVE BREAST CANCER
     Dosage: 140 MG, Q3W
     Route: 042
     Dates: start: 20160215, end: 20160215
  11. TRASTUZUMAB EMTANSINE [Suspect]
     Active Substance: ADO-TRASTUZUMAB EMTANSINE
     Indication: BREAST CANCER METASTATIC
     Dosage: 172 MG, Q3W
     Route: 042
     Dates: start: 20151201, end: 20151221
  12. NERATINIB [Suspect]
     Active Substance: NERATINIB
     Dosage: 240 MG, QD
     Route: 048
     Dates: start: 20170901, end: 20180216
  13. SANDO K [Concomitant]
     Indication: NUTRITIONAL SUPPLEMENTATION
     Dosage: 2 DF, QD
     Route: 048
     Dates: start: 20150828, end: 20150830
  14. CIPROFLOXACIN. [Concomitant]
     Active Substance: CIPROFLOXACIN
     Dosage: 1000 MG, QD
     Route: 048
     Dates: start: 20151218, end: 20151225
  15. TAZOCIN [Concomitant]
     Active Substance: PIPERACILLIN SODIUM\TAZOBACTAM SODIUM
     Indication: LOWER RESPIRATORY TRACT INFECTION
     Dosage: UNK
     Route: 042
     Dates: start: 20170213, end: 20170215
  16. GRANULOCYTE COLONY STIMULATING FACTOR [Concomitant]
     Active Substance: GRANULOCYTE COLONY-STIMULATING FACTOR NOS
     Indication: PRODUCT USED FOR UNKNOWN INDICATION
     Dosage: 300 UG(QD FOR 3 DAYS STARTING ON DAY 3 AND 11)
     Route: 058
     Dates: start: 20150725, end: 20150730
  17. CAPECITABINE. [Suspect]
     Active Substance: CAPECITABINE
     Indication: HER2 POSITIVE BREAST CANCER
     Dosage: 3000 MG, QD
     Route: 048
     Dates: start: 20170210, end: 20170728
  18. TRASTUZUMAB. [Suspect]
     Active Substance: TRASTUZUMAB
     Indication: HER2 POSITIVE BREAST CANCER
     Dosage: 350 MG, UNK(LOADING DOSE)
     Route: 042
     Dates: start: 20150601
  19. TRASTUZUMAB. [Suspect]
     Active Substance: TRASTUZUMAB
     Dosage: 172 MG, Q3W
     Route: 042
     Dates: start: 20151201, end: 20151221
  20. TRASTUZUMAB. [Suspect]
     Active Substance: TRASTUZUMAB
     Dosage: 300 MG, Q3W
     Route: 065
     Dates: start: 20150601, end: 20151101
  21. MUPIROCIN. [Concomitant]
     Active Substance: MUPIROCIN
     Indication: PROPHYLAXIS
     Dosage: 2 %, QD
     Route: 061
     Dates: start: 20160620, end: 20160624
  22. AMLODIPINE [Concomitant]
     Active Substance: AMLODIPINE BESYLATE
     Indication: PRODUCT USED FOR UNKNOWN INDICATION
     Dosage: 10 MG
     Route: 048
  23. RED BLOOD CELLS, CONCENTRATED [Concomitant]
     Active Substance: HUMAN RED BLOOD CELL
     Indication: PRODUCT USED FOR UNKNOWN INDICATION
     Dosage: 2 UNK, QD
     Route: 042
     Dates: start: 20160702, end: 20160702
  24. RED BLOOD CELLS, CONCENTRATED [Concomitant]
     Active Substance: HUMAN RED BLOOD CELL
     Dosage: 2 UNK, QD
     Route: 042
     Dates: start: 20180526, end: 20180526
  25. DOCETAXEL. [Suspect]
     Active Substance: DOCETAXEL
     Dosage: 86 MG, Q3W(DOSE DISCONTINUED)
     Route: 042
     Dates: start: 20150629, end: 20150720
  26. VINORELBINE [Suspect]
     Active Substance: VINORELBINE TARTRATE
     Indication: BREAST CANCER METASTATIC
     Dosage: 60 MG
     Route: 048
     Dates: start: 20180608, end: 20180810
  27. VINORELBINE [Suspect]
     Active Substance: VINORELBINE TARTRATE
     Dosage: 60 MG
     Route: 048
     Dates: start: 20180503, end: 20180608
  28. TRASTUZUMAB EMTANSINE [Suspect]
     Active Substance: ADO-TRASTUZUMAB EMTANSINE
     Dosage: 140 MG, Q3W
     Route: 042
     Dates: start: 20151201, end: 20160215
  29. TRASTUZUMAB. [Suspect]
     Active Substance: TRASTUZUMAB
     Dosage: 140 MG, Q3W
     Route: 042
     Dates: start: 20151201, end: 20151221
  30. ERIBULIN MESILATE [Suspect]
     Active Substance: ERIBULIN
     Dosage: 1.5 MG, Q2W
     Route: 042
  31. NERATINIB [Suspect]
     Active Substance: NERATINIB
     Dosage: 240 MG, QD
     Route: 048
     Dates: start: 20180223, end: 20180402
  32. DOMPERIDONE [Concomitant]
     Active Substance: DOMPERIDONE
     Indication: PRODUCT USED FOR UNKNOWN INDICATION
     Dosage: 10 MG, QD(0.33 DAYS)
     Route: 048
     Dates: start: 20160406, end: 20160421
  33. FILGRASTIM [Concomitant]
     Active Substance: FILGRASTIM
     Indication: PRODUCT USED FOR UNKNOWN INDICATION
     Dosage: 300 UG, UNK(EVERY DAY FOR 3 DAYS STARTING ON DAYS 3 AND 11)
     Route: 058
     Dates: start: 20160421, end: 20160712
  34. CAPECITABINE. [Suspect]
     Active Substance: CAPECITABINE
     Dosage: 1500 UNK(0.5 DAY)
     Route: 048
  35. PERTUZUMAB. [Suspect]
     Active Substance: PERTUZUMAB
     Dosage: 840 MILLIGRAM, Q3W (1 DF) LOADING DOSE
     Route: 042
  36. ERIBULIN MESILATE [Suspect]
     Active Substance: ERIBULIN
     Dosage: UNK
     Route: 065
  37. NERATINIB [Suspect]
     Active Substance: NERATINIB
     Indication: HER2 POSITIVE BREAST CANCER
     Dosage: 40 MG, QD
     Route: 048
     Dates: start: 20170901, end: 20180314
  38. MEROPENEM. [Concomitant]
     Active Substance: MEROPENEM
     Indication: LOWER RESPIRATORY TRACT INFECTION
     Dosage: UNK
     Route: 042
     Dates: start: 20170215, end: 20170221
  39. FILGRASTIM [Concomitant]
     Active Substance: FILGRASTIM
     Dosage: 300 UG, QD
     Route: 058
     Dates: start: 20150725, end: 20150730
  40. GENTAMICIN. [Concomitant]
     Active Substance: GENTAMICIN
     Indication: LOWER RESPIRATORY TRACT INFECTION
     Dosage: UNK
     Route: 042
     Dates: start: 20170213, end: 201702
  41. GRANULOCYTE COLONY STIMULATING FACTOR [Concomitant]
     Active Substance: GRANULOCYTE COLONY-STIMULATING FACTOR NOS
     Dosage: 300 UG(QD FOR 3 DAYS STARTING ON DAY 3 AND 11)
     Route: 058
     Dates: start: 20160421, end: 20160721
  42. TRASTUZUMAB. [Suspect]
     Active Substance: TRASTUZUMAB
     Dosage: 1 DF, Q3W(DOSE REDUCED)
     Route: 042
  43. ERIBULIN MESILATE [Suspect]
     Active Substance: ERIBULIN
     Dosage: 1.5 MG, Q3W
     Route: 042
     Dates: start: 20160624, end: 20160624
  44. NERATINIB [Suspect]
     Active Substance: NERATINIB
     Dosage: UNK
     Route: 065
  45. MUPIROCIN. [Concomitant]
     Active Substance: MUPIROCIN
     Dosage: 6 %, QD
     Route: 061
     Dates: start: 20160620, end: 20160624
  46. PERTUZUMAB. [Suspect]
     Active Substance: PERTUZUMAB
     Indication: HER2 POSITIVE BREAST CANCER
     Dosage: 420 MG, Q3W(TARGETED THERAPY)
     Route: 042
     Dates: start: 20150622, end: 20151102
  47. PERTUZUMAB. [Suspect]
     Active Substance: PERTUZUMAB
     Dosage: 420 MG, Q3W
     Route: 042
     Dates: start: 20151102, end: 20151102
  48. TRASTUZUMAB. [Suspect]
     Active Substance: TRASTUZUMAB
     Dosage: 300 MG, Q3W(DOSE MODIFIED)
     Route: 042
     Dates: start: 20150629, end: 20151102
  49. TRASTUZUMAB. [Suspect]
     Active Substance: TRASTUZUMAB
     Dosage: UNK, Q3W
     Route: 042
  50. ERIBULIN MESILATE [Suspect]
     Active Substance: ERIBULIN
     Dosage: UNK
     Route: 042
  51. CIPROFLOXACIN. [Concomitant]
     Active Substance: CIPROFLOXACIN
     Indication: PRODUCT USED FOR UNKNOWN INDICATION
     Dosage: 500 MG, QD(0.5 DAY)
     Route: 048
     Dates: start: 20151218, end: 20151225
  52. CO?AMOXICLAV [Concomitant]
     Active Substance: AMOXICILLIN\CLAVULANATE POTASSIUM
     Indication: LOWER RESPIRATORY TRACT INFECTION
     Dosage: 625 MG, QD
     Route: 048
     Dates: start: 20170222, end: 20170228
  53. CO?AMOXICLAV [Concomitant]
     Active Substance: AMOXICILLIN\CLAVULANATE POTASSIUM
     Dosage: 1875 MG, QD
     Route: 048
     Dates: start: 20170222, end: 20170228
  54. RED BLOOD CELLS, CONCENTRATED [Concomitant]
     Active Substance: HUMAN RED BLOOD CELL
     Dosage: 2 UNK, QD
     Route: 065
     Dates: start: 20180626, end: 20180626
  55. CAPECITABINE. [Suspect]
     Active Substance: CAPECITABINE
     Indication: BREAST CANCER METASTATIC
     Dosage: 3000 MG, QD (1500MG, BID)
     Route: 048
  56. CAPECITABINE. [Suspect]
     Active Substance: CAPECITABINE
     Dosage: 3000 MG, QD
     Route: 048
  57. NERATINIB [Suspect]
     Active Substance: NERATINIB
     Dosage: 40 MG, QD
     Route: 048

REACTIONS (33)
  - Off label use [Unknown]
  - Dyspepsia [Recovered/Resolved]
  - Rash pruritic [Recovered/Resolved]
  - Lethargy [Recovered/Resolved]
  - Intentional product misuse [Unknown]
  - Colitis [Not Recovered/Not Resolved]
  - Disease progression [Fatal]
  - Neutropenia [Not Recovered/Not Resolved]
  - Thrombocytopenia [Not Recovered/Not Resolved]
  - Neuropathy peripheral [Recovering/Resolving]
  - Hyperchlorhydria [Recovered/Resolved]
  - Folate deficiency [Recovered/Resolved]
  - Tremor [Recovered/Resolved]
  - Dysphonia [Recovering/Resolving]
  - Cough [Recovered/Resolved]
  - Decreased appetite [Recovered/Resolved]
  - Pyrexia [Recovered/Resolved]
  - Weight decreased [Not Recovered/Not Resolved]
  - Pancytopenia [Not Recovered/Not Resolved]
  - Mucosal inflammation [Recovered/Resolved]
  - Fatigue [Recovered/Resolved]
  - Dyspepsia [Unknown]
  - Hypoaesthesia [Unknown]
  - Alopecia [Not Recovered/Not Resolved]
  - Alopecia [Not Recovered/Not Resolved]
  - Throat irritation [Not Recovered/Not Resolved]
  - Product use issue [Unknown]
  - Diarrhoea [Recovered/Resolved]
  - Fatigue [Recovered/Resolved]
  - Palpitations [Unknown]
  - Odynophagia [Not Recovered/Not Resolved]
  - Tremor [Unknown]
  - Nausea [Recovered/Resolved]

NARRATIVE: CASE EVENT DATE: 20150601
